FAERS Safety Report 13442126 (Version 1)
Quarter: 2017Q2

REPORT INFORMATION
  Report Type: Spontaneous
  Country: US (occurrence: US)
  Receive Date: 20170413
  Receipt Date: 20170413
  Transmission Date: 20170830
  Serious: No
  Sender: FDA-Public Use
  Company Number: US-BAYER-2017-063800

PATIENT
  Age: 92 Year
  Sex: Female

DRUGS (1)
  1. MIRALAX [Suspect]
     Active Substance: POLYETHYLENE GLYCOL 3350
     Indication: CONSTIPATION
     Dosage: 1/2 DOSE
     Route: 048
     Dates: start: 2016

REACTIONS (5)
  - Circumstance or information capable of leading to medication error [Unknown]
  - Product use in unapproved indication [Unknown]
  - Product use issue [Unknown]
  - Product use issue [Unknown]
  - Drug effect variable [Unknown]

NARRATIVE: CASE EVENT DATE: 2016
